FAERS Safety Report 7139136-3 (Version None)
Quarter: 2010Q4

REPORT INFORMATION
  Report Type: 
  Country: None (occurrence: None)
  Receive Date: 20101206
  Receipt Date: 20101124
  Transmission Date: 20110411
  Serious: Yes (Other)
  Sender: FDA-Public Use
  Company Number: PHHY2010NL57893

PATIENT
  Sex: Male

DRUGS (12)
  1. ZOMETA [Suspect]
     Dosage: 4 MG/ 5 ML, 20MIN
     Route: 042
     Dates: start: 20100723
  2. ZOMETA [Suspect]
     Dosage: 4 MG/ 5 ML
     Route: 042
     Dates: start: 20100811
  3. ZOMETA [Suspect]
     Dosage: 4 MG/ 5 ML
     Route: 042
     Dates: start: 20100901
  4. ZOMETA [Suspect]
     Dosage: 4 MG/ 5 ML
     Route: 042
     Dates: start: 20100922
  5. DICLOFENAC [Concomitant]
  6. PANADOL [Concomitant]
  7. PANTOZOL [Concomitant]
  8. METOPROLOL [Concomitant]
  9. SINAPRIL [Concomitant]
  10. MOVICOLON [Concomitant]
  11. SPIRIVA [Concomitant]
  12. MORPHINE PUMP [Concomitant]

REACTIONS (6)
  - BONE PAIN [None]
  - MALIGNANT NEOPLASM PROGRESSION [None]
  - METASTASES TO BONE [None]
  - METASTASES TO MUSCLE [None]
  - PAIN IN JAW [None]
  - TUMOUR PAIN [None]
